FAERS Safety Report 9311823 (Version 1)
Quarter: 2013Q2

REPORT INFORMATION
  Report Type: Report from Study
  Country: BR (occurrence: BR)
  Receive Date: 20130528
  Receipt Date: 20130528
  Transmission Date: 20140414
  Serious: Yes (Hospitalization)
  Sender: FDA-Public Use
  Company Number: PHHY2013BR052844

PATIENT
  Sex: Male
  Weight: 73 kg

DRUGS (3)
  1. DIOVAN AMLO FIX [Suspect]
     Indication: HYPERTENSION
     Dosage: 1 DF (160/5 MG), DAILY
     Dates: start: 2006
  2. OMEPRAZOLE [Concomitant]
     Indication: DYSPEPSIA
     Dosage: 20 MG, DAILY
     Route: 048
     Dates: start: 2006
  3. OMEPRAZOLE [Concomitant]
     Indication: GASTRITIS

REACTIONS (4)
  - Dengue fever [Recovered/Resolved]
  - Immunodeficiency [Recovered/Resolved]
  - Pharyngitis [Recovered/Resolved]
  - Anxiety [Recovering/Resolving]
